FAERS Safety Report 9831816 (Version 2)
Quarter: 2014Q1

REPORT INFORMATION
  Report Type: Other
  Country: GB (occurrence: GB)
  Receive Date: 20140121
  Receipt Date: 20140325
  Transmission Date: 20141002
  Serious: Yes (Hospitalization)
  Sender: FDA-Public Use
  Company Number: GB-PERRIGO-14GB000286

PATIENT
  Age: 55 Year
  Sex: Female
  Weight: 56 kg

DRUGS (15)
  1. DEXSOL 0.4MG/ML PL00427/0137 [Suspect]
     Indication: BREAST CANCER METASTATIC
     Dosage: 4 MG, QD
     Route: 065
     Dates: start: 20130711, end: 20130719
  2. DICLOFENAC [Suspect]
     Indication: ANALGESIC THERAPY
     Dosage: 50 MG, TID
     Route: 065
     Dates: start: 20130711, end: 20130719
  3. AFINITOR [Suspect]
     Indication: BREAST CANCER METASTATIC
     Dosage: 10 MG, QD
     Route: 048
     Dates: start: 20130307, end: 20130710
  4. EXEMESTANE [Suspect]
     Indication: BREAST CANCER METASTATIC
     Dosage: 25 MG, QD
     Route: 048
     Dates: start: 20130307, end: 20130710
  5. EXEMESTANE [Suspect]
     Dosage: 25 MG, UNK
     Route: 048
     Dates: start: 201203
  6. FENTANYL [Concomitant]
     Indication: ANALGESIC THERAPY
     Dosage: 25 DF HOURLY
     Route: 065
     Dates: start: 20130607
  7. FENTANYL [Concomitant]
     Indication: PRODUCT USED FOR UNKNOWN INDICATION
     Dosage: 37 DF, UNK
     Route: 065
     Dates: start: 20130723
  8. PARACETAMOL [Concomitant]
     Indication: ANALGESIC THERAPY
     Dosage: 50 MG, QD
     Route: 048
     Dates: start: 20130513
  9. PARACETAMOL [Concomitant]
     Indication: PRODUCT USED FOR UNKNOWN INDICATION
     Dosage: 1 G, UNK
     Route: 048
     Dates: start: 20130719
  10. VOLTAROL [Concomitant]
     Indication: ANALGESIC THERAPY
     Dosage: 50 MG, TID
     Route: 048
  11. CYCLIZINE [Concomitant]
     Indication: ANTIEMETIC SUPPORTIVE CARE
     Dosage: AS NECESSARY
     Route: 048
     Dates: start: 20130313
  12. ORAMORPH [Concomitant]
     Indication: ANALGESIC THERAPY
     Dosage: AS NECESSARY
     Route: 065
     Dates: start: 20130313
  13. PREGABALIN [Concomitant]
     Indication: PRODUCT USED FOR UNKNOWN INDICATION
     Dosage: 25 MG, BID
     Route: 048
     Dates: start: 20130717
  14. PREGABALIN [Concomitant]
     Indication: NEURALGIA
     Dosage: 75 MG, TID
     Route: 048
     Dates: start: 20130719
  15. ZOPICLONE [Concomitant]
     Indication: INSOMNIA
     Dosage: 2-3 AT NIGHT
     Route: 048
     Dates: start: 20130408

REACTIONS (5)
  - Colitis [Not Recovered/Not Resolved]
  - Gastric ulcer [Recovering/Resolving]
  - Vomiting [Unknown]
  - Rectal haemorrhage [Recovered/Resolved with Sequelae]
  - Diarrhoea [Recovered/Resolved with Sequelae]
